FAERS Safety Report 5920893-6 (Version None)
Quarter: 2008Q4

REPORT INFORMATION
  Report Type: 
  Country: None (occurrence: None)
  Receive Date: 20081016
  Receipt Date: 20081005
  Transmission Date: 20090506
  Serious: Yes (Other)
  Sender: FDA-Public Use
  Company Number: BR-ROCHE-590182

PATIENT
  Sex: Female

DRUGS (2)
  1. RIVOTRIL [Suspect]
     Indication: DRUG USE FOR UNKNOWN INDICATION
     Dosage: STRENGTH: 2.5 MG / ML
     Route: 048
     Dates: start: 19890101
  2. RIVOTRIL [Suspect]
     Dosage: STRENGTH: 2.5 MG / ML.
     Route: 048

REACTIONS (11)
  - ALOPECIA [None]
  - ANOREXIA [None]
  - CONVULSION [None]
  - CRYING [None]
  - EAR INFECTION [None]
  - GAMMA-GLUTAMYLTRANSFERASE ABNORMAL [None]
  - HEADACHE [None]
  - RHINITIS [None]
  - TREMOR [None]
  - URINARY RETENTION [None]
  - WEIGHT INCREASED [None]
